FAERS Safety Report 6556612-2 (Version None)
Quarter: 2010Q1

REPORT INFORMATION
  Report Type: 
  Country: None (occurrence: None)
  Receive Date: 20100128
  Receipt Date: 20100119
  Transmission Date: 20100710
  Serious: Yes (Hospitalization)
  Sender: FDA-Public Use
  Company Number: US-JNJFOC-20091104716

PATIENT
  Age: 74 Year
  Sex: Female
  Weight: 68.04 kg

DRUGS (4)
  1. REMICADE [Suspect]
     Indication: SERONEGATIVE ARTHRITIS
     Route: 042
     Dates: start: 20040401, end: 20061024
  2. PLAQUENIL [Concomitant]
     Indication: SERONEGATIVE ARTHRITIS
  3. METHOTREXATE [Concomitant]
     Indication: SERONEGATIVE ARTHRITIS
  4. FOLIC ACID [Concomitant]
     Indication: SERONEGATIVE ARTHRITIS

REACTIONS (4)
  - ACUTE LEFT VENTRICULAR FAILURE [None]
  - CARDIOMYOPATHY [None]
  - CORONARY ARTERY OCCLUSION [None]
  - PSORIASIS [None]
